FAERS Safety Report 5759513-2 (Version None)
Quarter: 2008Q2

REPORT INFORMATION
  Report Type: 
  Country: None (occurrence: None)
  Receive Date: 20080604
  Receipt Date: 20080604
  Transmission Date: 20081010
  Serious: Yes (Life-Threatening, Disabling)
  Sender: FDA-Public Use
  Company Number: None

PATIENT

DRUGS (3)
  1. DIGITEK TABS - AMIDE (BERTEK) [Suspect]
     Indication: CARDIAC DISORDER
     Dosage: 0.25 MG 1 TAB DAILY
     Dates: start: 20080201
  2. DIGITEK TABS - AMIDE (BERTEK) [Suspect]
     Indication: CARDIAC DISORDER
     Dosage: 0.25 MG 1 TAB DAILY
     Dates: start: 20080301
  3. DIGITEK TABS - AMIDE (BERTEK) [Suspect]
     Indication: CARDIAC DISORDER
     Dosage: 0.25 MG 1 TAB DAILY
     Dates: start: 20080401

REACTIONS (4)
  - DIZZINESS [None]
  - DYSPNOEA [None]
  - INCORRECT DOSE ADMINISTERED [None]
  - STOMACH DISCOMFORT [None]
